FAERS Safety Report 5072501-7 (Version None)
Quarter: 2006Q3

REPORT INFORMATION
  Report Type: 
  Country: None (occurrence: None)
  Receive Date: 20060801
  Receipt Date: 20060719
  Transmission Date: 20061208
  Serious: Yes (Life-Threatening)
  Sender: FDA-Public Use
  Company Number: 2006-01862

PATIENT
  Age: 61 Year
  Sex: Female
  Weight: 62 kg

DRUGS (1)
  1. VELCADE [Suspect]
     Indication: DRUG USE FOR UNKNOWN INDICATION
     Dosage: 2.10 MG, INTRAVENOUS
     Route: 042

REACTIONS (9)
  - BONE MARROW DISORDER [None]
  - DISEASE PROGRESSION [None]
  - HYPOTENSION [None]
  - LUNG CONSOLIDATION [None]
  - LUNG INFILTRATION [None]
  - NEUTROPENIA [None]
  - PNEUMONIA [None]
  - RENAL IMPAIRMENT [None]
  - THROMBOCYTOPENIA [None]
